FAERS Safety Report 16579486 (Version 1)
Quarter: 2019Q3

REPORT INFORMATION
  Report Type: Report from Study
  Country: CA (occurrence: CA)
  Receive Date: 20190716
  Receipt Date: 20190716
  Transmission Date: 20191004
  Serious: Yes (Hospitalization)
  Sender: FDA-Public Use
  Company Number: CA-TEVA-2019-CA-1078849

PATIENT
  Age: 62 Year
  Sex: Female

DRUGS (5)
  1. SALBUTAMOL SULFATE [Interacting]
     Active Substance: ALBUTEROL SULFATE
     Indication: PRODUCT USED FOR UNKNOWN INDICATION
     Route: 065
  2. MORPHINE SULFATE. [Suspect]
     Active Substance: MORPHINE SULFATE
     Indication: PRODUCT USED FOR UNKNOWN INDICATION
     Route: 065
  3. ADVAIR HFA [Interacting]
     Active Substance: FLUTICASONE PROPIONATE\SALMETEROL XINAFOATE
     Indication: PRODUCT USED FOR UNKNOWN INDICATION
     Route: 065
  4. LYRICA [Interacting]
     Active Substance: PREGABALIN
     Indication: PRODUCT USED FOR UNKNOWN INDICATION
     Route: 065
  5. OXYCODONE [Interacting]
     Active Substance: OXYCODONE
     Indication: PRODUCT USED FOR UNKNOWN INDICATION
     Route: 065

REACTIONS (7)
  - Dyspnoea [Recovering/Resolving]
  - Feeling abnormal [Recovering/Resolving]
  - Hypercapnia [Recovering/Resolving]
  - Hypotension [Recovering/Resolving]
  - Sedation [Recovering/Resolving]
  - Drug interaction [Recovering/Resolving]
  - Confusional state [Recovering/Resolving]
